FAERS Safety Report 14532846 (Version 1)
Quarter: 2018Q1

REPORT INFORMATION
  Report Type: Report from Study
  Country: JP (occurrence: JP)
  Receive Date: 20180214
  Receipt Date: 20180214
  Transmission Date: 20180509
  Serious: Yes (Other)
  Sender: FDA-Public Use
  Company Number: JP-AMGEN-JPNNI2018020940

PATIENT
  Age: 62 Year
  Sex: Female
  Weight: 50 kg

DRUGS (22)
  1. CARBOPLATIN. [Concomitant]
     Active Substance: CARBOPLATIN
     Dosage: 700 MG, UNK
     Route: 041
     Dates: start: 20170208, end: 20170208
  2. CARBOPLATIN. [Concomitant]
     Active Substance: CARBOPLATIN
     Dosage: 560 MG, UNK
     Route: 041
     Dates: start: 20170315, end: 20170315
  3. CARBOPLATIN. [Concomitant]
     Active Substance: CARBOPLATIN
     Dosage: 700 MG, UNK
     Route: 041
     Dates: start: 20161213, end: 20161213
  4. BEVACIZUMAB. [Concomitant]
     Active Substance: BEVACIZUMAB
     Indication: FALLOPIAN TUBE CANCER
     Dosage: UNK
     Route: 041
  5. PEGFILGRASTIM [Suspect]
     Active Substance: PEGFILGRASTIM
     Dosage: 3.6 MG, UNK
     Route: 058
     Dates: start: 20170112, end: 20170112
  6. PACLITAXEL. [Concomitant]
     Active Substance: PACLITAXEL
     Dosage: 200 MG, UNK
     Route: 041
     Dates: start: 20170315, end: 20170315
  7. CARBOPLATIN. [Concomitant]
     Active Substance: CARBOPLATIN
     Dosage: 700 MG, UNK
     Route: 041
     Dates: start: 20170111, end: 20170111
  8. PEGFILGRASTIM [Suspect]
     Active Substance: PEGFILGRASTIM
     Indication: COLONY STIMULATING FACTOR PROPHYLAXIS
     Dosage: 3.6 MG, UNK
     Route: 058
     Dates: start: 20161214, end: 20161214
  9. PACLITAXEL. [Concomitant]
     Active Substance: PACLITAXEL
     Dosage: 250 MG, UNK
     Route: 041
     Dates: start: 20161213, end: 20161213
  10. PACLITAXEL. [Concomitant]
     Active Substance: PACLITAXEL
     Indication: FALLOPIAN TUBE CANCER
     Dosage: UNK
     Route: 041
  11. PACLITAXEL. [Concomitant]
     Active Substance: PACLITAXEL
     Dosage: UNK
     Route: 041
  12. PACLITAXEL. [Concomitant]
     Active Substance: PACLITAXEL
     Dosage: 250 MG, UNK
     Route: 041
     Dates: start: 20170111, end: 20170111
  13. PACLITAXEL. [Concomitant]
     Active Substance: PACLITAXEL
     Dosage: 250 MG, UNK
     Route: 041
     Dates: start: 20170208, end: 20170208
  14. BEVACIZUMAB. [Concomitant]
     Active Substance: BEVACIZUMAB
     Dosage: 750 MG, UNK
     Route: 041
     Dates: start: 20170111, end: 20170111
  15. CARBOPLATIN. [Concomitant]
     Active Substance: CARBOPLATIN
     Dosage: UNK
     Route: 041
  16. BEVACIZUMAB. [Concomitant]
     Active Substance: BEVACIZUMAB
     Dosage: 750 MG, UNK
     Route: 041
     Dates: start: 20161213, end: 20161213
  17. BEVACIZUMAB. [Concomitant]
     Active Substance: BEVACIZUMAB
     Dosage: 750 MG, UNK
     Route: 041
     Dates: start: 20170208, end: 20170208
  18. BEVACIZUMAB. [Concomitant]
     Active Substance: BEVACIZUMAB
     Dosage: 750 MG, UNK
     Route: 041
     Dates: start: 20170315, end: 20170315
  19. PEGFILGRASTIM [Suspect]
     Active Substance: PEGFILGRASTIM
     Dosage: 3.6 MG, UNK
     Route: 058
     Dates: start: 20170209, end: 20170209
  20. PEGFILGRASTIM [Suspect]
     Active Substance: PEGFILGRASTIM
     Dosage: 3.6 MG, UNK
     Route: 058
     Dates: start: 20170316, end: 20170316
  21. CARBOPLATIN. [Concomitant]
     Active Substance: CARBOPLATIN
     Indication: FALLOPIAN TUBE CANCER
     Dosage: UNK
     Route: 041
  22. BEVACIZUMAB. [Concomitant]
     Active Substance: BEVACIZUMAB
     Dosage: UNK
     Route: 041

REACTIONS (1)
  - Blast cell count increased [Recovered/Resolved]

NARRATIVE: CASE EVENT DATE: 20170301
